FAERS Safety Report 5603473-1 (Version None)
Quarter: 2008Q1

REPORT INFORMATION
  Report Type: 
  Country: None (occurrence: None)
  Receive Date: 20080123
  Receipt Date: 20080104
  Transmission Date: 20080703
  Serious: Yes (Hospitalization, Other)
  Sender: FDA-Public Use
  Company Number: 8028885

PATIENT
  Sex: Male

DRUGS (4)
  1. KEPPRA [Suspect]
     Dosage: 500 MG 2/D PO
     Route: 048
     Dates: start: 20070927
  2. KEPPRA [Suspect]
     Dosage: 250 MG 2/D PO
     Route: 048
     Dates: start: 20071101, end: 20071101
  3. KEPPRA [Suspect]
     Dosage: 250 MG /D PO
     Route: 048
     Dates: start: 20071101, end: 20071101
  4. PLAVIX [Suspect]
     Dates: start: 20071101

REACTIONS (2)
  - CEREBRAL THROMBOSIS [None]
  - PRURITUS [None]
